FAERS Safety Report 6068719-7 (Version None)
Quarter: 2009Q1

REPORT INFORMATION
  Report Type: 
  Country: None (occurrence: None)
  Receive Date: 20090206
  Receipt Date: 20090205
  Transmission Date: 20090719
  Serious: Yes (Hospitalization)
  Sender: FDA-Public Use
  Company Number: B0557647A

PATIENT
  Age: 62 Year
  Sex: Female

DRUGS (10)
  1. REQUIP [Suspect]
     Indication: PARKINSON'S DISEASE
     Route: 048
     Dates: start: 20080421, end: 20080804
  2. CABASER [Suspect]
     Indication: PARKINSON'S DISEASE
     Route: 048
     Dates: start: 20080421, end: 20080622
  3. TALIPEXOLE HYDROCHLORIDE [Suspect]
     Indication: PARKINSON'S DISEASE
     Dosage: .4MG PER DAY
     Route: 048
     Dates: start: 20080421, end: 20080804
  4. CARBIDOPA AND LEVODOPA [Suspect]
     Indication: PARKINSON'S DISEASE
     Dosage: 100MG FIVE TIMES PER DAY
     Route: 048
     Dates: start: 20080421, end: 20080804
  5. SYMMETREL [Suspect]
     Indication: PARKINSON'S DISEASE
     Route: 048
  6. ARTANE [Suspect]
     Indication: PARKINSON'S DISEASE
     Route: 048
  7. COMTAN [Suspect]
     Indication: PARKINSON'S DISEASE
     Route: 048
  8. CEROCRAL [Concomitant]
     Indication: BRAIN STEM THROMBOSIS
     Route: 048
  9. RIVOTRIL [Concomitant]
     Route: 048
  10. ASPIRIN [Concomitant]
     Indication: BRAIN STEM THROMBOSIS
     Route: 048

REACTIONS (3)
  - DIZZINESS POSTURAL [None]
  - MEMORY IMPAIRMENT [None]
  - NEUROLEPTIC MALIGNANT SYNDROME [None]
